FAERS Safety Report 15542328 (Version 2)
Quarter: 2018Q4

REPORT INFORMATION
  Report Type: Spontaneous
  Country: JP (occurrence: JP)
  Receive Date: 20181023
  Receipt Date: 20181029
  Transmission Date: 20190205
  Serious: Yes (Death)
  Sender: FDA-Public Use
  Company Number: JP-PFIZER INC-2018429227

PATIENT
  Age: 82 Year
  Sex: Female

DRUGS (6)
  1. LEVOFLOXACIN. [Concomitant]
     Active Substance: LEVOFLOXACIN
     Indication: CAMPYLOBACTER INFECTION
     Dosage: 500 MG, 1X/DAY (ONCE DAILY FOR 5 DAYS)
     Route: 048
  2. LEVOFLOXACIN. [Concomitant]
     Active Substance: LEVOFLOXACIN
     Indication: ENTERITIS
  3. CEFTRIAXONE SODIUM. [Suspect]
     Active Substance: CEFTRIAXONE SODIUM
     Indication: ENTERITIS
  4. CEFTRIAXONE SODIUM. [Suspect]
     Active Substance: CEFTRIAXONE SODIUM
     Indication: CAMPYLOBACTER INFECTION
     Dosage: 2 G, DAILY (EVERY 24 HOURS FOR 5 DAYS)
     Route: 042
  5. TACROLIMUS. [Concomitant]
     Active Substance: TACROLIMUS
     Dosage: 2 MG, UNK
  6. PREDNISOLONE. [Concomitant]
     Active Substance: PREDNISOLONE
     Dosage: 9 MG, UNK

REACTIONS (4)
  - Bile duct obstruction [Fatal]
  - Cholelithiasis [Fatal]
  - Cholangitis acute [Fatal]
  - Pancreatitis acute [Fatal]
